FAERS Safety Report 20987294 (Version 1)
Quarter: 2022Q2

REPORT INFORMATION
  Report Type: Report from Study
  Country: US (occurrence: US)
  Receive Date: 20220621
  Receipt Date: 20220621
  Transmission Date: 20220721
  Serious: Yes (Hospitalization, Other)
  Sender: FDA-Public Use
  Company Number: US-CELGENE-USA-20190700693

PATIENT
  Age: 87 Year
  Sex: Male
  Weight: 64.41 kg

DRUGS (2)
  1. VIDAZA [Suspect]
     Active Substance: AZACITIDINE
     Indication: Myelodysplastic syndrome
     Dosage: 7 IN 28 DAYS
     Route: 058
     Dates: start: 20180416, end: 20180515
  2. VIDAZA [Suspect]
     Active Substance: AZACITIDINE
     Dosage: 3-DAYS IN 28 DAYS
     Route: 048
     Dates: start: 20180711, end: 20190220

REACTIONS (7)
  - Chest pain [Recovered/Resolved]
  - Abdominal pain [Recovered/Resolved]
  - Constipation [Recovered/Resolved]
  - Staphylococcal bacteraemia [Recovered/Resolved]
  - Osteomyelitis [Not Recovered/Not Resolved]
  - Neck pain [Recovered/Resolved]
  - Non-cardiac chest pain [Recovered/Resolved]

NARRATIVE: CASE EVENT DATE: 20180515
